FAERS Safety Report 5102591-4 (Version None)
Quarter: 2006Q3

REPORT INFORMATION
  Report Type: 
  Country: None (occurrence: None)
  Receive Date: 20060907
  Receipt Date: 20060828
  Transmission Date: 20061208
  Serious: No
  Sender: FDA-Public Use
  Company Number: 06H-163-0309762-00

PATIENT
  Sex: 0

DRUGS (2)
  1. KETAMINE HCL [Suspect]
     Indication: SEDATIVE THERAPY
  2. MORPHINE SULFATE [Suspect]
     Indication: ANALGESIC THERAPY

REACTIONS (1)
  - LIFE SUPPORT [None]
